FAERS Safety Report 10142056 (Version 1)
Quarter: 2014Q2

REPORT INFORMATION
  Report Type: Report from Study
  Country: US (occurrence: US)
  Receive Date: 20140429
  Receipt Date: 20140429
  Transmission Date: 20141212
  Serious: Yes (Hospitalization)
  Sender: FDA-Public Use
  Company Number: PHHY2014US048926

PATIENT
  Age: 70 Year
  Sex: Female

DRUGS (16)
  1. FOLINIC ACID [Suspect]
     Indication: ADENOCARCINOMA GASTRIC
     Dosage: 720 MG, UNK (1 IN 14 DAY)
     Dates: start: 20140207, end: 20140321
  2. FOLINIC ACID [Suspect]
     Indication: OESOPHAGEAL ADENOCARCINOMA
  3. FLUOROURACIL [Suspect]
     Dosage: 720 MG, (BOLUS DOSE, 1 IN 14 D)
     Dates: start: 20140207
  4. FLUOROURACIL [Suspect]
     Dosage: 4320 MG, UNK
     Route: 042
     Dates: start: 20140207, end: 20140321
  5. OXALIPLATIN [Suspect]
     Indication: OESOPHAGEAL ADENOCARCINOMA
     Dosage: 153 MG, (1 IN 14 DAYS)
     Route: 042
     Dates: start: 20140207, end: 20140321
  6. OXALIPLATIN [Suspect]
     Indication: ADENOCARCINOMA GASTRIC
  7. PLACEBO [Suspect]
     Dosage: UNK UKN, QD (DAY 1 TO DAY 7 OF 14 DAY CYCLE)
     Route: 048
     Dates: start: 20140207, end: 20140321
  8. PEPCID [Concomitant]
     Dosage: 20 MG, UNK
     Route: 048
     Dates: start: 20140115, end: 20140315
  9. PEPCID [Concomitant]
  10. ZOFRAN [Concomitant]
     Indication: NAUSEA
     Dosage: 08 MG, UNK
     Dates: start: 20140203
  11. OXYCONTIN [Concomitant]
     Indication: ABDOMINAL PAIN
     Dosage: 10 MG, UNK
     Route: 048
     Dates: start: 20140203
  12. OXYCONTIN [Concomitant]
     Dosage: 20 MG, UNK
     Route: 048
     Dates: start: 20140212
  13. COMPAZINE [Concomitant]
     Indication: NAUSEA
     Dosage: 5 MG, UNK
     Route: 048
     Dates: start: 20140205
  14. MIRALAX [Concomitant]
     Indication: CONSTIPATION
     Dosage: UNK (1 TABLESPOON DOSING UNIT)
     Route: 048
     Dates: start: 20140201
  15. ATIVAN [Concomitant]
     Indication: INFUSION RELATED REACTION
     Dosage: 0.5 MG, UNK
     Route: 048
     Dates: start: 20140321, end: 20140321
  16. IMODIUM [Concomitant]
     Indication: DIARRHOEA
     Route: 048
     Dates: start: 20140327

REACTIONS (1)
  - Dehydration [Recovered/Resolved]
